FAERS Safety Report 24696705 (Version 2)
Quarter: 2024Q4

REPORT INFORMATION
  Report Type: Spontaneous
  Country: VN (occurrence: VN)
  Receive Date: 20241204
  Receipt Date: 20241212
  Transmission Date: 20250114
  Serious: Yes (Death)
  Sender: SANDOZ
  Company Number: VN-002147023-NVSC2024VN228202

PATIENT

DRUGS (2)
  1. METHOTREXATE [Suspect]
     Active Substance: METHOTREXATE
     Indication: Central nervous system lymphoma
     Dosage: 3500 MG/M2
     Route: 065
  2. RITUXIMAB [Suspect]
     Active Substance: RITUXIMAB
     Indication: Central nervous system lymphoma
     Dosage: 375MG/M2 N
     Route: 065

REACTIONS (2)
  - Pneumonia [Fatal]
  - Product use in unapproved indication [Unknown]
